FAERS Safety Report 6399664-5 (Version None)
Quarter: 2009Q4

REPORT INFORMATION
  Report Type: 
  Country: None (occurrence: None)
  Receive Date: 20091009
  Receipt Date: 20091009
  Transmission Date: 20100525
  Serious: Yes (Other)
  Sender: FDA-Public Use
  Company Number: None

PATIENT
  Age: 29 Year
  Sex: Female

DRUGS (1)
  1. APLISOL [Suspect]
     Dosage: RIGHT FOREARM 6+ YEARLY

REACTIONS (5)
  - ERYTHEMA [None]
  - FEELING HOT [None]
  - MALAISE [None]
  - SKIN WARM [None]
  - TENDERNESS [None]
